FAERS Safety Report 9088055 (Version 1)
Quarter: 2013Q1

REPORT INFORMATION
  Report Type: Report from Study
  Country: US (occurrence: US)
  Receive Date: 20130201
  Receipt Date: 20130201
  Transmission Date: 20140127
  Serious: No
  Sender: FDA-Public Use
  Company Number: US-ABBOTT-12P-163-1026934-00

PATIENT
  Age: 64 Year
  Sex: Female

DRUGS (12)
  1. HUMIRA [Suspect]
     Indication: CROHN^S DISEASE
     Dosage: 160MG ON 04 DEC 2012; 80 MG ON 18 DEC 2012
     Dates: start: 20121204
  2. MORPHINE [Concomitant]
     Indication: PRODUCT USED FOR UNKNOWN INDICATION
     Dosage: IMMEDIATE RELEASE TABLETS
  3. MORPHINE [Concomitant]
     Indication: PAIN IN EXTREMITY
  4. LORAZEPAM [Concomitant]
     Indication: ANXIETY
  5. RESTORIL [Concomitant]
     Indication: PRODUCT USED FOR UNKNOWN INDICATION
  6. CYMBALTA [Concomitant]
     Indication: DEPRESSION
  7. BENTYL [Concomitant]
     Indication: PHANTOM PAIN
     Dosage: 2 TO 3 TIMES PER DAY
  8. ZANTAC [Concomitant]
     Indication: DYSPEPSIA
  9. GAVISCON [Concomitant]
     Indication: PAIN
  10. GAS X [Concomitant]
     Indication: PAIN
  11. VITAMIN B12 [Concomitant]
     Indication: PRODUCT USED FOR UNKNOWN INDICATION
  12. TIZANIDINE [Concomitant]
     Indication: PAIN IN EXTREMITY
     Dosage: 1 EVERY 8 HOURS

REACTIONS (3)
  - Abdominal pain [Not Recovered/Not Resolved]
  - Drug ineffective [Not Recovered/Not Resolved]
  - Diarrhoea haemorrhagic [Not Recovered/Not Resolved]
